FAERS Safety Report 18943618 (Version 1)
Quarter: 2021Q1

REPORT INFORMATION
  Report Type: Spontaneous
  Country: US (occurrence: US)
  Receive Date: 20210226
  Receipt Date: 20210226
  Transmission Date: 20210420
  Serious: Yes (Other)
  Sender: FDA-Public Use
  Company Number: US-ABBVIE-21K-163-3750290-00

PATIENT
  Sex: Female

DRUGS (1)
  1. CREON [Suspect]
     Active Substance: PANCRELIPASE AMYLASE\PANCRELIPASE LIPASE\PANCRELIPASE PROTEASE
     Indication: PANCREATIC FAILURE
     Route: 048

REACTIONS (5)
  - Multiple sclerosis [Unknown]
  - Procedural pain [Not Recovered/Not Resolved]
  - Surgery [Unknown]
  - Laziness [Unknown]
  - Bradykinesia [Unknown]

NARRATIVE: CASE EVENT DATE: 2019
